FAERS Safety Report 4468154-9 (Version None)
Quarter: 2004Q4

REPORT INFORMATION
  Report Type: 
  Country: None (occurrence: None)
  Receive Date: 20041001
  Receipt Date: 20040916
  Transmission Date: 20050328
  Serious: Yes (Life-Threatening, Other)
  Sender: FDA-Public Use
  Company Number: C2003-1822.05

PATIENT
  Age: 6 Year
  Sex: Female

DRUGS (8)
  1. CYSTAGON [Suspect]
     Indication: CYSTINOSIS
     Dosage: 900MG/DAY ORAL, AGE3, AGE 5
     Route: 048
  2. CYSTEAMINE EYE DROPS SIGMA TAU [Suspect]
  3. POLYCITRA-K [Concomitant]
  4. NEUTRAPHOS-K [Concomitant]
  5. POTASSIUM [Concomitant]
  6. SPIRONOLACTONE [Concomitant]
  7. ENALAPRIL MALEATE [Concomitant]
  8. VITAMIN D [Concomitant]

REACTIONS (1)
  - PAPILLOEDEMA [None]
